FAERS Safety Report 8158525-1 (Version None)
Quarter: 2012Q1

REPORT INFORMATION
  Report Type: 
  Country: None (occurrence: None)
  Receive Date: 20120223
  Receipt Date: 20120215
  Transmission Date: 20120608
  Serious: No
  Sender: FDA-Public Use
  Company Number: US-PFIZER INC-2004017218

PATIENT
  Sex: Female
  Weight: 44 kg

DRUGS (4)
  1. IBUPROFEN [Suspect]
     Indication: HEADACHE
     Dosage: UNK
     Route: 048
  2. BENADRYL [Suspect]
     Indication: SLEEP DISORDER
  3. FEXOFENADINE HYDROCHLORIDE [Concomitant]
     Indication: HYPERSENSITIVITY
     Dosage: UNK
     Route: 048
  4. BENADRYL [Suspect]
     Indication: MULTIPLE ALLERGIES
     Dosage: 1 TABLET ONCE DAILY
     Route: 048
     Dates: start: 20040307, end: 20040310

REACTIONS (1)
  - FEELING ABNORMAL [None]
